FAERS Safety Report 16882822 (Version 1)
Quarter: 2019Q4

REPORT INFORMATION
  Report Type: Spontaneous
  Country: US (occurrence: US)
  Receive Date: 20191003
  Receipt Date: 20191003
  Transmission Date: 20200122
  Serious: Yes (Other)
  Sender: FDA-Public Use
  Company Number: US-BEH-2019107313

PATIENT
  Age: 15 Month
  Sex: Male

DRUGS (6)
  1. HUMATE-P [Suspect]
     Active Substance: HUMAN COAGULATION FACTOR VIII/VON WILLEBRAND FACTOR COMPLEX
     Dosage: 474 INTERNATIONAL UNIT
     Route: 042
     Dates: start: 20190730
  2. TYLENOL [Concomitant]
     Active Substance: ACETAMINOPHEN
     Indication: TEETHING
  3. HUMATE-P [Suspect]
     Active Substance: HUMAN COAGULATION FACTOR VIII/VON WILLEBRAND FACTOR COMPLEX
     Dosage: 474 INTERNATIONAL UNIT
     Route: 042
     Dates: start: 20190730
  4. TYLENOL [Concomitant]
     Active Substance: ACETAMINOPHEN
     Indication: TEETHING
  5. HUMATE-P [Suspect]
     Active Substance: HUMAN COAGULATION FACTOR VIII/VON WILLEBRAND FACTOR COMPLEX
     Indication: FACTOR VIII DEFICIENCY
     Dosage: 233 INTERNATIONAL UNIT, BID
     Route: 042
     Dates: start: 20190827
  6. HUMATE-P [Suspect]
     Active Substance: HUMAN COAGULATION FACTOR VIII/VON WILLEBRAND FACTOR COMPLEX
     Indication: FACTOR VIII DEFICIENCY
     Dosage: 233 INTERNATIONAL UNIT, BID
     Route: 042
     Dates: start: 20190827

REACTIONS (1)
  - Complication associated with device [Recovered/Resolved]

NARRATIVE: CASE EVENT DATE: 20190914
